FAERS Safety Report 7114504-4 (Version None)
Quarter: 2010Q4

REPORT INFORMATION
  Report Type: 
  Country: None (occurrence: None)
  Receive Date: 20101119
  Receipt Date: 20101118
  Transmission Date: 20110411
  Serious: Yes (Hospitalization)
  Sender: FDA-Public Use
  Company Number: CN-ABBOTT-10P-035-0669352-00

PATIENT
  Sex: Female
  Weight: 46 kg

DRUGS (5)
  1. HUMIRA [Suspect]
     Indication: RHEUMATOID ARTHRITIS
     Route: 058
     Dates: start: 20100902, end: 20100930
  2. CICLOSPORIN [Concomitant]
     Indication: RHEUMATOID ARTHRITIS
     Dosage: 2 TAB BID
     Route: 048
     Dates: start: 20100802
  3. PREDNISONE ACETATE [Concomitant]
     Indication: RHEUMATOID ARTHRITIS
     Dosage: 2 TABLETS QM
     Dates: start: 20100802
  4. METOPROLOL TARTRATE [Concomitant]
     Indication: VENTRICULAR EXTRASYSTOLES
     Dosage: HALF TAB QD
     Route: 048
     Dates: start: 20100904
  5. METOPROLOL TARTRATE [Concomitant]
     Indication: SUPRAVENTRICULAR EXTRASYSTOLES

REACTIONS (4)
  - ARTHRALGIA [None]
  - BONE PAIN [None]
  - GENERALISED OEDEMA [None]
  - JOINT SWELLING [None]
